FAERS Safety Report 25461947 (Version 2)
Quarter: 2025Q3

REPORT INFORMATION
  Report Type: Other
  Country: EU (occurrence: EU)
  Receive Date: 20250620
  Receipt Date: 20250703
  Transmission Date: 20251021
  Serious: Yes (Hospitalization, Other)
  Sender: EMD SERONO INC
  Company Number: EU-NAPPMUNDI-GBR-2021-0093101

PATIENT
  Age: 83 Year
  Sex: Female
  Weight: 91 kg

DRUGS (39)
  1. LEVOTHYROXINE [Interacting]
     Active Substance: LEVOTHYROXINE
     Indication: Product used for unknown indication
     Dosage: 100 MCG, DAILY (1-0-0)
  2. OMEPRAZOLE [Suspect]
     Active Substance: OMEPRAZOLE
     Indication: Product used for unknown indication
     Dosage: 100 MG, BID (TWICE A DAY)
  3. OMEPRAZOLE [Suspect]
     Active Substance: OMEPRAZOLE
     Dosage: 100 MG, BID (TWICE A DAY)
  4. DONEPEZIL [Suspect]
     Active Substance: DONEPEZIL
     Indication: Product used for unknown indication
  5. DENOSUMAB [Suspect]
     Active Substance: DENOSUMAB
     Indication: Product used for unknown indication
  6. BENSERAZIDE\LEVODOPA [Suspect]
     Active Substance: BENSERAZIDE\LEVODOPA
     Indication: Product used for unknown indication
     Dosage: 62.5 MG, TID (THRICE A DAY)
  7. METOPROLOL [Suspect]
     Active Substance: METOPROLOL
     Indication: Product used for unknown indication
  8. ACETAMINOPHEN [Suspect]
     Active Substance: ACETAMINOPHEN
     Indication: Product used for unknown indication
     Dosage: 500 MG, BID (TWICE A DAY)
  9. POTASSIUM CHLORIDE [Suspect]
     Active Substance: POTASSIUM CHLORIDE
     Indication: Product used for unknown indication
     Dosage: 391 MG, BID (TWICE A DAY)
  10. QUETIAPINE [Suspect]
     Active Substance: QUETIAPINE
     Indication: Product used for unknown indication
  11. TORSEMIDE [Suspect]
     Active Substance: TORSEMIDE
     Indication: Product used for unknown indication
     Dosage: 5 MG, QD (ONCE A DAY)
  12. TRAMADOL [Suspect]
     Active Substance: TRAMADOL
     Indication: Product used for unknown indication
  13. TRAMADOL [Suspect]
     Active Substance: TRAMADOL
  14. VITAMIN D3 [Suspect]
     Active Substance: CHOLECALCIFEROL
     Indication: Product used for unknown indication
     Dosage: UNK, QD (ONCE A DAY)
  15. VORTIOXETINE [Suspect]
     Active Substance: VORTIOXETINE
     Indication: Product used for unknown indication
     Dosage: 10 MG, QD
  16. METOCLOPRAMIDE [Suspect]
     Active Substance: METOCLOPRAMIDE
     Indication: Constipation
  17. ISOSORBIDE MONONITRATE [Interacting]
     Active Substance: ISOSORBIDE MONONITRATE
     Indication: Product used for unknown indication
     Dosage: 50 MG, BID (AS NEEDED, AV. ONCE/TWICE DAILY)
  18. ALLOPURINOL [Interacting]
     Active Substance: ALLOPURINOL
     Indication: Product used for unknown indication
     Dosage: 100 MG, DAILY (DOSING 1-0-0)
  19. ALPRAZOLAM [Interacting]
     Active Substance: ALPRAZOLAM
     Indication: Product used for unknown indication
     Dosage: 0.5 MG, BID (TWICE A DAY) (AS NEEDED, AV)
  20. ATORVASTATIN [Interacting]
     Active Substance: ATORVASTATIN
     Indication: Product used for unknown indication
     Dosage: 20 MG, DAILY (DOSING 0-0-1)
  21. BETAHISTINE HYDROCHLORIDE [Interacting]
     Active Substance: BETAHISTINE HYDROCHLORIDE
     Indication: Product used for unknown indication
     Dosage: 24 MG, DAILY (0-1-0)
  22. CITALOPRAM [Interacting]
     Active Substance: CITALOPRAM
     Indication: Product used for unknown indication
     Dosage: 40 MG, DAILY (1-0-0)
  23. DABIGATRAN [Interacting]
     Active Substance: DABIGATRAN
     Indication: Product used for unknown indication
     Dosage: 110 MG, BID (1-0-1)
  24. FUROSEMIDE [Interacting]
     Active Substance: FUROSEMIDE
     Indication: Product used for unknown indication
     Dosage: 40 MG, TID (3/DAY)
  25. GLICLAZIDE [Interacting]
     Active Substance: GLICLAZIDE
     Indication: Product used for unknown indication
     Dosage: 60 MG, TID (1-1-1)
  26. DEXTROSE [Interacting]
     Active Substance: DEXTROSE MONOHYDRATE
     Indication: Product used for unknown indication
  27. HYDROCHLOROTHIAZIDE [Interacting]
     Active Substance: HYDROCHLOROTHIAZIDE
     Indication: Product used for unknown indication
     Dosage: 25 MG, DAILY (1-0-0)
  28. HYDROXYZINE [Interacting]
     Active Substance: HYDROXYZINE HYDROCHLORIDE
     Indication: Product used for unknown indication
     Dosage: 25 MG, AS NEEDED, AV. TWICE DAILY), STRENGTH 25 MG
  29. POTASSIUM CHLORIDE [Interacting]
     Active Substance: POTASSIUM CHLORIDE
     Indication: Product used for unknown indication
  30. METOPROLOL [Interacting]
     Active Substance: METOPROLOL
     Indication: Product used for unknown indication
     Dosage: 50 MG, BID (TWICE A DAY) (DOSING 1-0-1)
  31. NIKETHAMIDE [Interacting]
     Active Substance: NIKETHAMIDE
     Indication: Product used for unknown indication
  32. ACETAMINOPHEN [Interacting]
     Active Substance: ACETAMINOPHEN
     Indication: Product used for unknown indication
     Dosage: 500 MG, DAILY (0-0-1)
  33. RAMIPRIL [Interacting]
     Active Substance: RAMIPRIL
     Indication: Product used for unknown indication
     Dosage: 5 MG, DAILY (DOSING 1-0-0)
  34. ALBUTEROL [Interacting]
     Active Substance: ALBUTEROL
     Indication: Product used for unknown indication
  35. SPIRONOLACTONE [Interacting]
     Active Substance: SPIRONOLACTONE
     Indication: Product used for unknown indication
     Dosage: 100 MG, DAILY (DOSING 0-1-0)
  36. TRAMADOL HYDROCHLORIDE [Interacting]
     Active Substance: TRAMADOL HYDROCHLORIDE
     Indication: Pain
  37. ZOLPIDEM [Interacting]
     Active Substance: ZOLPIDEM TARTRATE
     Indication: Product used for unknown indication
     Dosage: 10 MG, DAILY (0-0-1)
  38. OMEPRAZOLE [Interacting]
     Active Substance: OMEPRAZOLE
     Indication: Product used for unknown indication
     Dosage: 20 MG, BID (TWICE A DAY) (1-1-0)
  39. METOCLOPRAMIDE [Interacting]
     Active Substance: METOCLOPRAMIDE
     Indication: Product used for unknown indication

REACTIONS (25)
  - Hypoglycaemia [Unknown]
  - Hypotension [Unknown]
  - Hyperglycaemia [Unknown]
  - Urinary retention [Unknown]
  - Hyponatraemia [Unknown]
  - Dementia [Unknown]
  - Melaena [Unknown]
  - Fall [Unknown]
  - Mobility decreased [Unknown]
  - Dizziness [Unknown]
  - Cognitive disorder [Unknown]
  - Drug dependence [Unknown]
  - Arthralgia [Unknown]
  - Parkinsonism [Unknown]
  - Syncope [Unknown]
  - Nausea [Unknown]
  - Depression [Unknown]
  - Constipation [Unknown]
  - Abdominal pain upper [Unknown]
  - Pruritus [Unknown]
  - Initial insomnia [Unknown]
  - Drug ineffective [Unknown]
  - Medication error [Unknown]
  - Multiple drug therapy [Unknown]
  - Product use issue [Recovered/Resolved]

NARRATIVE: CASE EVENT DATE: 20210101
